FAERS Safety Report 9666734 (Version 1)
Quarter: 2013Q4

REPORT INFORMATION
  Report Type: Spontaneous
  Country: US (occurrence: US)
  Receive Date: 20131104
  Receipt Date: 20131104
  Transmission Date: 20140711
  Serious: No
  Sender: FDA-Public Use
  Company Number: US-BIOGENIDEC-2013BI087323

PATIENT
  Age: 66 Year
  Sex: Female

DRUGS (4)
  1. TECFIDERA [Suspect]
     Indication: MULTIPLE SCLEROSIS
     Route: 048
     Dates: start: 20130604
  2. PREMARIN [Concomitant]
  3. WELLBUTRIN [Concomitant]
  4. EDARBI [Concomitant]

REACTIONS (1)
  - Flushing [Unknown]
